FAERS Safety Report 7104470-X (Version None)
Quarter: 2010Q4

REPORT INFORMATION
  Report Type: 
  Country: None (occurrence: None)
  Receive Date: 20101116
  Receipt Date: 20091027
  Transmission Date: 20110411
  Serious: No
  Sender: FDA-Public Use
  Company Number: US-BIOGENIDEC-2009BI034926

PATIENT
  Age: 42 Year
  Sex: Female

DRUGS (3)
  1. TYSABRI [Suspect]
     Indication: MULTIPLE SCLEROSIS
     Route: 042
     Dates: start: 20071231, end: 20091012
  2. TYSABRI [Suspect]
     Route: 042
     Dates: start: 20100824
  3. TYLENOL [Concomitant]

REACTIONS (7)
  - CRYING [None]
  - DECREASED APPETITE [None]
  - EAR DISCOMFORT [None]
  - EMOTIONAL DISTRESS [None]
  - HEADACHE [None]
  - PANIC ATTACK [None]
  - VISUAL IMPAIRMENT [None]
